FAERS Safety Report 8763810 (Version 1)
Quarter: 2012Q4

REPORT INFORMATION
  Report Type: 
  Country: DE (occurrence: DE)
  Receive Date: 20120831
  Receipt Date: 20120831
  Transmission Date: 20130627
  Serious: Yes (Hospitalization)
  Sender: FDA-Public Use
  Company Number: DE-PFIZER INC-2012209974

PATIENT
  Age: 71 Year
  Sex: Male
  Weight: 79.5 kg

DRUGS (1)
  1. GENOTROPIN [Suspect]
     Indication: GROWTH HORMONE DEFICIENCY
     Dosage: 0.2 mg, 1x/day, seven injections/weeky
     Route: 058
     Dates: start: 20080705

REACTIONS (1)
  - Gastroenteritis [Unknown]
